FAERS Safety Report 15277762 (Version 1)
Quarter: 2018Q3

REPORT INFORMATION
  Report Type: Spontaneous
  Country: US (occurrence: US)
  Receive Date: 20180814
  Receipt Date: 20180814
  Transmission Date: 20181010
  Serious: No
  Sender: FDA-Public Use
  Company Number: US-BRISTOL-MYERS SQUIBB COMPANY-BMS-2018-072889

PATIENT
  Age: 90 Year
  Sex: Male

DRUGS (2)
  1. BUMEX [Concomitant]
     Active Substance: BUMETANIDE
     Indication: PRODUCT USED FOR UNKNOWN INDICATION
     Dosage: UNK
     Route: 065
  2. COUMADIN [Suspect]
     Active Substance: WARFARIN SODIUM
     Indication: HEART VALVE REPLACEMENT
     Dosage: 2 MG, UNK
     Route: 048

REACTIONS (2)
  - International normalised ratio decreased [Unknown]
  - Food interaction [Unknown]

NARRATIVE: CASE EVENT DATE: 20180709
